FAERS Safety Report 9140693 (Version 1)
Quarter: 2013Q1

REPORT INFORMATION
  Report Type: Spontaneous
  Country: ES (occurrence: ES)
  Receive Date: 20130305
  Receipt Date: 20130305
  Transmission Date: 20140127
  Serious: Yes (Death)
  Sender: FDA-Public Use
  Company Number: ES-VIIV HEALTHCARE LIMITED-B0872244A

PATIENT
  Age: 54 Year
  Sex: Male

DRUGS (6)
  1. KIVEXA [Suspect]
     Indication: HIV INFECTION
     Dosage: 1TAB PER DAY
     Route: 048
     Dates: start: 201108, end: 20120824
  2. VICTRELIS [Suspect]
     Indication: HEPATITIS C
     Dosage: 800MG THREE TIMES PER DAY
     Route: 048
     Dates: start: 20120712, end: 20120824
  3. REBETOL [Suspect]
     Indication: HEPATITIS C
     Dosage: 300MG TWICE PER DAY
     Route: 048
     Dates: start: 20120712, end: 20120824
  4. PEGINTRON [Suspect]
     Indication: HEPATITIS C
     Dosage: 100MCG WEEKLY
     Route: 058
     Dates: start: 20120712, end: 20120824
  5. ISENTRESS [Suspect]
     Indication: HIV INFECTION
     Dosage: 400MG TWICE PER DAY
     Route: 048
     Dates: start: 201108
  6. CUBICIN [Suspect]
     Indication: PRODUCT USED FOR UNKNOWN INDICATION
     Dosage: 500MG PER DAY
     Route: 042
     Dates: start: 20120719, end: 20120824

REACTIONS (2)
  - Lactic acidosis [Fatal]
  - Drug interaction [Unknown]
